FAERS Safety Report 7527387-5 (Version None)
Quarter: 2011Q2

REPORT INFORMATION
  Report Type: 
  Country: None (occurrence: None)
  Receive Date: 20110512
  Receipt Date: 20110125
  Transmission Date: 20111010
  Serious: No
  Sender: FDA-Public Use
  Company Number: 1000018499

PATIENT
  Age: 66 Year
  Sex: Female

DRUGS (12)
  1. VITAMN C (VITAMIN C) (VITAMIN C) [Concomitant]
  2. DMAE (DEMETHYLAMINOETHANOL) (DEMETHYLAMINOETHANOL) [Concomitant]
  3. PANTOPRAZOLE (PANTOPRAZOLE) (PANTOPRAZOLE) [Concomitant]
  4. FLAX SEED (FLAX SEED) (FLAX SEED) [Concomitant]
  5. CLORAZEPATE (CLORAZEPATE DIPOTASSIUM) (CLORAZEPATE DIPOTASSIUM) [Concomitant]
  6. MULTIVITAMINS (MULTIVITAMINS) (MULTIVITAMINS) [Concomitant]
  7. PRIMROSE (PRIMROSE) (PRIMROSE) [Concomitant]
  8. ESTRADIOL [Concomitant]
  9. SAVELLA [Suspect]
     Indication: FIBROMYALGIA
     Dosage: 12.5 MG (12.5 MG,1 IN 1 D),ORAL ; 25 MG (12.5 MG,2 IN 1 D),ORAL ; 50 MG (25 MG,2 IN 1 D),ORAL
     Route: 048
     Dates: start: 20110121, end: 20110121
  10. SAVELLA [Suspect]
     Indication: FIBROMYALGIA
     Dosage: 12.5 MG (12.5 MG,1 IN 1 D),ORAL ; 25 MG (12.5 MG,2 IN 1 D),ORAL ; 50 MG (25 MG,2 IN 1 D),ORAL
     Route: 048
     Dates: start: 20110122, end: 20110123
  11. SAVELLA [Suspect]
     Indication: FIBROMYALGIA
     Dosage: 12.5 MG (12.5 MG,1 IN 1 D),ORAL ; 25 MG (12.5 MG,2 IN 1 D),ORAL ; 50 MG (25 MG,2 IN 1 D),ORAL
     Route: 048
     Dates: start: 20110124
  12. CALCIUM (CALCIUM) (CALCIUM) [Concomitant]

REACTIONS (9)
  - PERIPHERAL COLDNESS [None]
  - APATHY [None]
  - INSOMNIA [None]
  - ANXIETY [None]
  - DIZZINESS [None]
  - RESTLESSNESS [None]
  - HYPERHIDROSIS [None]
  - MOOD ALTERED [None]
  - DEPRESSION [None]
